FAERS Safety Report 8142249-0 (Version None)
Quarter: 2012Q1

REPORT INFORMATION
  Report Type: 
  Country: None (occurrence: None)
  Receive Date: 20120103
  Receipt Date: 20110830
  Transmission Date: 20120608
  Serious: No
  Sender: FDA-Public Use
  Company Number: AE-2011-001185

PATIENT

DRUGS (3)
  1. INCIVEK [Suspect]
     Dates: start: 20110812
  2. PEGASYS [Concomitant]
  3. RIBAVIRIN [Concomitant]

REACTIONS (2)
  - FATIGUE [None]
  - RASH [None]
